FAERS Safety Report 21970814 (Version 5)
Quarter: 2023Q1

REPORT INFORMATION
  Report Type: Report from Study
  Country: FR (occurrence: FR)
  Receive Date: 20230209
  Receipt Date: 20230301
  Transmission Date: 20230417
  Serious: Yes (Death, Hospitalization, Other)
  Sender: FDA-Public Use
  Company Number: FR-GBT-017544

PATIENT
  Age: 57 Year
  Sex: Male
  Weight: 54 kg

DRUGS (20)
  1. VOXELOTOR [Suspect]
     Active Substance: VOXELOTOR
     Indication: Haemolytic anaemia
     Route: 048
     Dates: start: 20221027
  2. VOXELOTOR [Suspect]
     Active Substance: VOXELOTOR
     Indication: Haemolytic anaemia
     Route: 048
     Dates: end: 20230131
  3. VOXELOTOR [Suspect]
     Active Substance: VOXELOTOR
  4. EPO/ARANEPS [Concomitant]
     Indication: Anaemia
     Dosage: DOSAGE: 600 UG/G
     Dates: start: 2018
  5. FOLIC ACID [Concomitant]
     Active Substance: FOLIC ACID
  6. CETIRIZINE [Concomitant]
     Active Substance: CETIRIZINE HYDROCHLORIDE
     Dosage: CETIRIZINE 1CP/DAY
  7. VIDAZA [Concomitant]
     Active Substance: AZACITIDINE
     Dosage: VIDAZA 5 DAYS A WEEK EVERY 7 WEEKS
  8. NEBIVOLOL [Concomitant]
     Active Substance: NEBIVOLOL
     Dosage: TEMERIT 5 MG (1 TABLET AT NOON)
  9. ESOMEPRAZOLE [Concomitant]
     Active Substance: ESOMEPRAZOLE
     Dosage: INEXIUM 20 MG (1 TABLET AT NIGHT)
  10. KARDEGIC [Concomitant]
     Active Substance: ASPIRIN DL-LYSINE
     Dosage: KARDEGIC 75 MG (1 SACHET  EVERY OTHER DAY)
  11. LANTUS [Concomitant]
     Active Substance: INSULIN GLARGINE
  12. KAYEXALATE [Concomitant]
     Active Substance: SODIUM POLYSTYRENE SULFONATE
     Dosage: KAYEXALATE: 1 MEASURING SPOON IN THE MORNING.
  13. CALCIUM PHOSPHATE, DIBASIC, ANHYDROUS\MAGNESIUM GLYCEROPHOSPHATE\PHOSP [Concomitant]
     Active Substance: CALCIUM PHOSPHATE, DIBASIC, ANHYDROUS\MAGNESIUM GLYCEROPHOSPHATE\PHOSPHORIC ACID\SODIUM PHOSPHATE, D
     Dosage: PHOSPHONEUROS 15 DROPS IN THE EVENING
  14. CHOLECALCIFEROL [Concomitant]
     Active Substance: CHOLECALCIFEROL
     Dosage: UVEDOSE 100.000 UL 1 VIAL/3 MONTHS
  15. CALCIUM CARBONATE [Concomitant]
     Active Substance: CALCIUM CARBONATE
     Dosage: CALCIDIA 1 PER DAY
  16. IMOVANE [Concomitant]
     Active Substance: ZOPICLONE
     Dosage: IMOVANE 7.5 MG AT NIGHT
  17. RAMIPRIL [Concomitant]
     Active Substance: RAMIPRIL
     Dosage: RAMIPRIL 10 MG (1 TABLET AT NIGHT)
  18. OXYCODONE HYDROCHLORIDE [Concomitant]
     Active Substance: OXYCODONE HYDROCHLORIDE
     Dosage: OXYNORM 5 MG 1 TABLET EVERY 8 HOURS IF PAIN
  19. DERMOVAL [Concomitant]
  20. POLYETHYLENE GLYCOL 4000 [Concomitant]
     Active Substance: POLYETHYLENE GLYCOL 4000

REACTIONS (6)
  - COVID-19 [Fatal]
  - Off label use [Unknown]
  - Anaemia [Fatal]
  - Pleural effusion [Unknown]
  - Lung disorder [Unknown]
  - Biliary dilatation [Unknown]

NARRATIVE: CASE EVENT DATE: 20221017
